FAERS Safety Report 6133253-2 (Version None)
Quarter: 2009Q1

REPORT INFORMATION
  Report Type: 
  Country: None (occurrence: None)
  Receive Date: 20090326
  Receipt Date: 20090318
  Transmission Date: 20090719
  Serious: Yes (Hospitalization, Disabling)
  Sender: FDA-Public Use
  Company Number: JP-ASTRAZENECA-2009SE01238

PATIENT
  Age: 56 Year
  Sex: Male
  Weight: 53 kg

DRUGS (13)
  1. BLOPRESS [Suspect]
     Indication: HYPERTENSION
     Route: 048
     Dates: start: 20080117, end: 20080408
  2. GLYCEROL 2.6% [Concomitant]
     Indication: CEREBRAL HAEMORRHAGE
     Route: 042
     Dates: start: 20080117, end: 20080121
  3. DIURETICS [Concomitant]
     Indication: HYPERTENSION
     Route: 048
     Dates: start: 20080118, end: 20080308
  4. IBUDILAST [Concomitant]
     Indication: CEREBRAL HAEMORRHAGE
     Route: 048
     Dates: start: 20080327
  5. CALCIUM CHANNEL BLOCKERS [Concomitant]
     Indication: HYPERTENSION
     Route: 042
     Dates: start: 20080117, end: 20080118
  6. CALCIUM CHANNEL BLOCKERS [Concomitant]
     Route: 065
     Dates: start: 20080408
  7. TRANSAMIN [Concomitant]
     Route: 065
     Dates: start: 20080116, end: 20080117
  8. ADONA [Concomitant]
     Route: 065
     Dates: start: 20080116, end: 20080117
  9. PRIMPERAN [Concomitant]
     Route: 065
     Dates: start: 20080116, end: 20080117
  10. FAMOTIDINE [Concomitant]
     Route: 065
     Dates: start: 20080116, end: 20080117
  11. RASENAZOLIN [Concomitant]
     Route: 042
     Dates: start: 20080116, end: 20080128
  12. AMIKACIN SULFATE [Concomitant]
     Route: 042
     Dates: start: 20080128, end: 20080128
  13. BFLUID [Concomitant]
     Route: 042
     Dates: start: 20080117, end: 20080125

REACTIONS (3)
  - CALCULUS URETERIC [None]
  - HYDRONEPHROSIS [None]
  - LACUNAR INFARCTION [None]
